FAERS Safety Report 4983823-X (Version None)
Quarter: 2006Q1

REPORT INFORMATION
  Report Type: 
  Country: None (occurrence: None)
  Receive Date: 20060301
  Receipt Date: 20051116
  Transmission Date: 20060701
  Serious: No
  Sender: FDA-Public Use
  Company Number: S05-USA-04993-01

PATIENT
  Age: 49 Year
  Sex: Female

DRUGS (6)
  1. NAMENDA [Suspect]
     Indication: FACIAL PAIN
     Dosage: 5 MG QD PO
     Route: 048
     Dates: start: 20051010, end: 20051016
  2. NAMENDA [Suspect]
     Indication: FACIAL PAIN
     Dosage: 5 MG BID PO
     Route: 048
     Dates: start: 20051017, end: 20051019
  3. GEODON [Concomitant]
  4. SEROQUEL [Concomitant]
  5. LAMICTAL [Concomitant]
  6. VYTORIN [Concomitant]

REACTIONS (1)
  - VERTIGO [None]
